FAERS Safety Report 25486491 (Version 2)
Quarter: 2025Q3

REPORT INFORMATION
  Report Type: Spontaneous
  Country: JP (occurrence: JP)
  Receive Date: 20250627
  Receipt Date: 20250729
  Transmission Date: 20251020
  Serious: Yes (Hospitalization, Other)
  Sender: ACCORD
  Company Number: JP-Accord-491445

PATIENT
  Age: 81 Year
  Sex: Male
  Weight: 64.8 kg

DRUGS (4)
  1. METHOTREXATE [Suspect]
     Active Substance: METHOTREXATE
     Indication: Rheumatoid arthritis
     Route: 048
     Dates: start: 2015, end: 2023
  2. CELECOXIB [Concomitant]
     Active Substance: CELECOXIB
  3. FOLIC ACID [Concomitant]
     Active Substance: FOLIC ACID
  4. MIROGABALIN [Concomitant]
     Active Substance: MIROGABALIN
     Route: 048

REACTIONS (3)
  - Diffuse large B-cell lymphoma [Recovered/Resolved]
  - Fistula of small intestine [Recovered/Resolved]
  - Gastrointestinal lymphoma [Recovered/Resolved]

NARRATIVE: CASE EVENT DATE: 20230101
